FAERS Safety Report 4573883-2 (Version None)
Quarter: 2005Q1

REPORT INFORMATION
  Report Type: 
  Country: None (occurrence: None)
  Receive Date: 20050203
  Receipt Date: 20050125
  Transmission Date: 20050727
  Serious: Yes (Other)
  Sender: FDA-Public Use
  Company Number: 2005-01-0114

PATIENT
  Age: 62 Year
  Sex: Male
  Weight: 120.2032 kg

DRUGS (6)
  1. ALBUTEROL [Suspect]
     Indication: ASTHMA
     Dosage: 3 PUFFS ORAL AER INH
     Route: 055
     Dates: start: 20041201
  2. VENTOLIN [Suspect]
     Indication: ASTHMA
     Dosage: ORAL AER INH
     Route: 055
     Dates: start: 20041201
  3. METFORMIN HCL [Concomitant]
  4. TERAZOSIN [Concomitant]
  5. LISINOPRIL [Concomitant]
  6. ZOCOR [Concomitant]

REACTIONS (5)
  - BLOOD PRESSURE DECREASED [None]
  - DIZZINESS [None]
  - DRUG INEFFECTIVE [None]
  - MEDICATION ERROR [None]
  - SYNCOPE [None]
